FAERS Safety Report 7682713-1 (Version None)
Quarter: 2011Q3

REPORT INFORMATION
  Report Type: 
  Country: None (occurrence: None)
  Receive Date: 20110815
  Receipt Date: 20110803
  Transmission Date: 20111222
  Serious: Yes (Other)
  Sender: FDA-Public Use
  Company Number: JP-JNJFOC-20100406019

PATIENT
  Age: 56 Year
  Sex: Male
  Weight: 65 kg

DRUGS (22)
  1. REMICADE [Suspect]
     Route: 042
     Dates: start: 20100119
  2. DAI-KENCHU-TO [Concomitant]
     Indication: ABDOMINAL DISTENSION
     Route: 048
  3. GASCON [Concomitant]
     Indication: ABDOMINAL DISTENSION
     Route: 048
  4. PREDNISOLONE [Concomitant]
     Indication: CROHN'S DISEASE
     Route: 048
     Dates: start: 20081224, end: 20090203
  5. REMICADE [Suspect]
     Route: 042
     Dates: start: 20100316
  6. REMICADE [Suspect]
     Route: 042
     Dates: start: 20090203
  7. LOPERAMIDE HCL [Concomitant]
     Indication: DIARRHOEA
     Route: 048
  8. REMICADE [Suspect]
     Route: 042
     Dates: start: 20090407
  9. REMICADE [Suspect]
     Route: 042
     Dates: start: 20091124
  10. PENTASA [Concomitant]
     Indication: CROHN'S DISEASE
     Route: 048
     Dates: start: 20081224
  11. PROMAC (POLAPREZINC) [Concomitant]
     Indication: MINERAL SUPPLEMENTATION
     Route: 048
  12. TAGAMET [Concomitant]
     Indication: PROPHYLAXIS
     Route: 048
  13. REMICADE [Suspect]
     Indication: CROHN'S DISEASE
     Route: 042
     Dates: start: 20090602
  14. REMICADE [Suspect]
     Route: 042
     Dates: start: 20090929
  15. REMICADE [Suspect]
     Route: 042
     Dates: start: 20090107
  16. AZELASTINE HCL [Concomitant]
     Indication: PROPHYLAXIS
     Dosage: GIVEN WITH INFLIXIMAB DOSES
     Route: 048
     Dates: start: 20081224
  17. PREDNISOLONE [Concomitant]
     Route: 048
     Dates: start: 20090408, end: 20090712
  18. METHYCOBAL [Concomitant]
     Indication: VITAMIN SUPPLEMENTATION
     Route: 048
  19. PREDNISOLONE [Concomitant]
     Route: 048
     Dates: start: 20090428
  20. REMICADE [Suspect]
     Route: 042
     Dates: start: 20090728
  21. REMICADE [Suspect]
     Route: 042
     Dates: start: 20081224
  22. PREDNISOLONE [Concomitant]
     Route: 048
     Dates: start: 20090204, end: 20090407

REACTIONS (1)
  - LUPUS-LIKE SYNDROME [None]
